FAERS Safety Report 16621620 (Version 1)
Quarter: 2019Q3

REPORT INFORMATION
  Report Type: Spontaneous
  Country: FR (occurrence: FR)
  Receive Date: 20190723
  Receipt Date: 20190723
  Transmission Date: 20191004
  Serious: Yes (Hospitalization, Other)
  Sender: FDA-Public Use
  Company Number: FR-TEVA-2019-FR-1080635

PATIENT
  Age: 53 Year
  Sex: Female
  Weight: 66 kg

DRUGS (3)
  1. DOXORUBICINE [Suspect]
     Active Substance: DOXORUBICIN
     Indication: ALVEOLAR SOFT PART SARCOMA
     Route: 041
     Dates: start: 20120611, end: 20120927
  2. DACARBAZINE. [Suspect]
     Active Substance: DACARBAZINE
     Indication: ALVEOLAR SOFT PART SARCOMA
     Route: 041
     Dates: start: 20120611, end: 20120927
  3. IFOSFAMIDE. [Suspect]
     Active Substance: IFOSFAMIDE
     Indication: ALVEOLAR SOFT PART SARCOMA
     Route: 041
     Dates: start: 20120611, end: 20120927

REACTIONS (1)
  - Anaemia [Not Recovered/Not Resolved]

NARRATIVE: CASE EVENT DATE: 20120814
